FAERS Safety Report 8379911-0 (Version None)
Quarter: 2012Q2

REPORT INFORMATION
  Report Type: 
  Country: None (occurrence: None)
  Receive Date: 20120523
  Receipt Date: 20111006
  Transmission Date: 20120825
  Serious: Yes (Hospitalization, Other)
  Sender: FDA-Public Use
  Company Number: US-BAYER-2011-007983

PATIENT
  Age: 23 Year
  Sex: Female
  Weight: 68 kg

DRUGS (20)
  1. XOPENEX [Concomitant]
     Dosage: UNK
  2. ALBUTEROL [Concomitant]
     Route: 045
  3. ZOLOFT [Concomitant]
     Dosage: UNK
  4. GUAIFENESIN [Concomitant]
     Dosage: UNK
     Route: 048
  5. YAZ [Suspect]
     Indication: MENSTRUATION IRREGULAR
  6. YAZ [Suspect]
     Indication: PREMENSTRUAL SYNDROME
  7. NSAID'S [Concomitant]
  8. PHENERGAN EXPECTORANT W/ CODEINE [Concomitant]
  9. MEDROL [Concomitant]
     Dosage: UNK
     Route: 048
  10. AZITHROMYCIN [Concomitant]
     Dosage: 250 MG, QD
  11. ATIVAN [Concomitant]
  12. PROTONIX [Concomitant]
     Dosage: 40 MG, QD
     Route: 048
  13. ZOFRAN [Concomitant]
     Dosage: UNK
     Route: 042
  14. ADVAIR DISKUS 100/50 [Concomitant]
     Dosage: UNK
     Route: 048
  15. ROCEPHIN [Concomitant]
     Dosage: UNK
     Route: 042
  16. BIAXIN [Concomitant]
     Dosage: UNK
  17. YAZ [Suspect]
     Indication: ACNE
     Dosage: UNK
     Dates: start: 20060101, end: 20091101
  18. PREDNISONE [Concomitant]
     Route: 048
  19. CLARITHROMYCIN [Concomitant]
     Dosage: 500 MG, BID
     Route: 048
  20. SERTRALINE HYDROCHLORIDE [Concomitant]
     Dosage: 50 MG, UNK
     Route: 048

REACTIONS (5)
  - ANXIETY [None]
  - DYSPNOEA [None]
  - PULMONARY EMBOLISM [None]
  - PAIN [None]
  - DEPRESSION [None]
